FAERS Safety Report 6988819-4 (Version None)
Quarter: 2010Q3

REPORT INFORMATION
  Report Type: 
  Country: None (occurrence: None)
  Receive Date: 20100916
  Receipt Date: 20100902
  Transmission Date: 20110219
  Serious: Yes (Hospitalization)
  Sender: FDA-Public Use
  Company Number: US-ELI_LILLY_AND_COMPANY-US201008003012

PATIENT
  Sex: Male
  Weight: 65.76 kg

DRUGS (1)
  1. EFFIENT [Suspect]
     Dates: start: 20100710

REACTIONS (1)
  - HOSPITALISATION [None]
